FAERS Safety Report 4854770-9 (Version None)
Quarter: 2005Q4

REPORT INFORMATION
  Report Type: 
  Country: None (occurrence: None)
  Receive Date: 20051215
  Receipt Date: 20051205
  Transmission Date: 20060501
  Serious: Yes (Death)
  Sender: FDA-Public Use
  Company Number: US-ABBOTT-05P-163-0319431-00

PATIENT
  Age: 21 Month

DRUGS (3)
  1. FERROUS SULFATE TAB [Suspect]
     Indication: DRUG USE FOR UNKNOWN INDICATION
     Dosage: 5-10 TABLETS
  2. METHAMPHETAMINE HCL [Interacting]
     Indication: DRUG USE FOR UNKNOWN INDICATION
     Dosage: 75-150 MG
  3. PHENOBARBITAL [Interacting]
     Indication: DRUG USE FOR UNKNOWN INDICATION
     Dosage: 150-300 MG

REACTIONS (8)
  - ASPIRATION [None]
  - DRUG INTERACTION [None]
  - DRUG TOXICITY [None]
  - GASTRITIS EROSIVE [None]
  - OVERDOSE [None]
  - PNEUMONIA [None]
  - RENAL TUBULAR NECROSIS [None]
  - SUBDURAL HAEMORRHAGE [None]
